FAERS Safety Report 14101839 (Version 1)
Quarter: 2017Q4

REPORT INFORMATION
  Report Type: Spontaneous
  Country: US (occurrence: US)
  Receive Date: 20171018
  Receipt Date: 20171018
  Transmission Date: 20180321
  Serious: No
  Sender: FDA-Public Use
  Company Number: US-ADAREPHARM-2017-US-000002

PATIENT
  Age: 89 Year
  Sex: Female
  Weight: 49 kg

DRUGS (2)
  1. HYDROCHLOROTHIAZIDE. [Concomitant]
     Active Substance: HYDROCHLOROTHIAZIDE
  2. KCL [Suspect]
     Active Substance: POTASSIUM CHLORIDE
     Indication: MINERAL SUPPLEMENTATION
     Route: 048
     Dates: start: 201609

REACTIONS (10)
  - Diarrhoea [Unknown]
  - Tachycardia [Unknown]
  - Muscle spasms [Unknown]
  - Flatulence [Unknown]
  - Asthenia [Unknown]
  - Abdominal discomfort [Unknown]
  - Dyspnoea [Unknown]
  - Cough [Unknown]
  - Dry mouth [Unknown]
  - Dizziness [Unknown]
